FAERS Safety Report 10552887 (Version 1)
Quarter: 2014Q4

REPORT INFORMATION
  Report Type: Spontaneous
  Country: US (occurrence: US)
  Receive Date: 20141029
  Receipt Date: 20141029
  Transmission Date: 20150529
  Serious: Yes (Other)
  Sender: FDA-Public Use
  Company Number: US-MYLANLABS-2014M1008141

PATIENT

DRUGS (5)
  1. BUDESONIDE. [Concomitant]
     Active Substance: BUDESONIDE
     Indication: CROHN^S DISEASE
     Dosage: 3 CAPSULES QD
     Route: 048
     Dates: start: 201410
  2. MERCAPTOPURINE TABLETS, USP [Suspect]
     Active Substance: MERCAPTOPURINE
     Indication: CROHN^S DISEASE
     Dosage: 75 MG, QD
     Route: 048
     Dates: start: 201410, end: 20141012
  3. SULFASALAZINE. [Concomitant]
     Active Substance: SULFASALAZINE
     Indication: CROHN^S DISEASE
     Dosage: 1 G, QD
     Route: 048
     Dates: start: 2014
  4. MERCAPTOPURINE TABLETS, USP [Suspect]
     Active Substance: MERCAPTOPURINE
     Indication: OFF LABEL USE
  5. QUESTRAN [Concomitant]
     Active Substance: CHOLESTYRAMINE
     Indication: CROHN^S DISEASE
     Dosage: ONE PACKET, PRN
     Route: 048
     Dates: start: 2014, end: 2014

REACTIONS (3)
  - Lipase increased [Not Recovered/Not Resolved]
  - Pancreatitis [Recovered/Resolved]
  - Amylase increased [Not Recovered/Not Resolved]

NARRATIVE: CASE EVENT DATE: 20141007
